FAERS Safety Report 17168369 (Version 4)
Quarter: 2020Q2

REPORT INFORMATION
  Report Type: Report from Study
  Country: CA (occurrence: CA)
  Receive Date: 20191218
  Receipt Date: 20200429
  Transmission Date: 20200713
  Serious: Yes (Other)
  Sender: FDA-Public Use
  Company Number: CA-BEH-2019110651

PATIENT
  Sex: Female

DRUGS (12)
  1. BERINERT [Suspect]
     Active Substance: HUMAN C1-ESTERASE INHIBITOR
     Indication: HEREDITARY ANGIOEDEMA WITH C1 ESTERASE INHIBITOR DEFICIENCY
     Dosage: 18000 INTERNATIONAL UNIT
     Route: 065
     Dates: start: 20170621
  2. BERINERT [Suspect]
     Active Substance: HUMAN C1-ESTERASE INHIBITOR
     Indication: PROPHYLAXIS
     Dosage: 1500 INTERNATIONAL UNIT
     Route: 042
     Dates: start: 20170621
  3. BERINERT [Suspect]
     Active Substance: HUMAN C1-ESTERASE INHIBITOR
     Dosage: UNK
     Route: 065
  4. BERINERT [Suspect]
     Active Substance: HUMAN C1-ESTERASE INHIBITOR
     Dosage: UNK
     Route: 065
  5. BERINERT [Suspect]
     Active Substance: HUMAN C1-ESTERASE INHIBITOR
     Dosage: 6000 INTERNATIONAL UNIT, QOD
     Route: 058
     Dates: start: 20170621
  6. BERINERT [Suspect]
     Active Substance: HUMAN C1-ESTERASE INHIBITOR
     Dosage: 6000 INTERNATIONAL UNIT, QOD
     Route: 058
     Dates: start: 20170621
  7. ZOFRAN [Concomitant]
     Active Substance: ONDANSETRON HYDROCHLORIDE
     Dosage: UNK, PRN (ON DEMAND)
     Route: 065
  8. BERINERT [Suspect]
     Active Substance: HUMAN C1-ESTERASE INHIBITOR
     Dosage: UNK
     Route: 065
  9. BERINERT [Suspect]
     Active Substance: HUMAN C1-ESTERASE INHIBITOR
     Indication: PROPHYLAXIS
     Dosage: 1500 INTERNATIONAL UNIT
     Route: 042
     Dates: start: 20170621
  10. BERINERT [Suspect]
     Active Substance: HUMAN C1-ESTERASE INHIBITOR
     Dosage: UNK
     Route: 065
  11. BERINERT [Suspect]
     Active Substance: HUMAN C1-ESTERASE INHIBITOR
     Indication: HEREDITARY ANGIOEDEMA WITH C1 ESTERASE INHIBITOR DEFICIENCY
     Dosage: 18000 INTERNATIONAL UNIT
     Route: 065
     Dates: start: 20170621
  12. NABUMETONE. [Concomitant]
     Active Substance: NABUMETONE
     Dosage: 1000 MILLIGRAM, PRN (ON DEMAND)

REACTIONS (10)
  - Hormone level abnormal [Not Recovered/Not Resolved]
  - Drug ineffective [Unknown]
  - Product physical issue [Unknown]
  - Hereditary angioedema [Recovered/Resolved with Sequelae]
  - Treatment noncompliance [Recovered/Resolved with Sequelae]
  - No adverse event [Unknown]
  - Product use in unapproved indication [Unknown]
  - Product solubility abnormal [Unknown]
  - Malaise [Recovered/Resolved with Sequelae]
  - Intentional product use issue [Unknown]

NARRATIVE: CASE EVENT DATE: 2019
